FAERS Safety Report 16984433 (Version 3)
Quarter: 2021Q1

REPORT INFORMATION
  Report Type: Spontaneous
  Country: US (occurrence: US)
  Receive Date: 20191101
  Receipt Date: 20210315
  Transmission Date: 20210419
  Serious: No
  Sender: FDA-Public Use
  Company Number: US-FARMAPROD-201909-1369

PATIENT
  Age: 76 Year
  Sex: Female

DRUGS (11)
  1. MOXIFLOXACIN. [Concomitant]
     Active Substance: MOXIFLOXACIN
  2. OXERVATE [Suspect]
     Active Substance: CENEGERMIN-BKBJ
     Indication: NERVE DEGENERATION
     Route: 047
     Dates: start: 20200930, end: 20201125
  3. TIMOPTIC [Concomitant]
     Active Substance: TIMOLOL MALEATE
     Indication: GLAUCOMA
  4. OXERVATE [Suspect]
     Active Substance: CENEGERMIN-BKBJ
     Indication: ULCERATIVE KERATITIS
  5. ZIOPTAN [Concomitant]
     Active Substance: TAFLUPROST
     Indication: GLAUCOMA
     Dosage: FORM OF ADMINISTRATION: DROPERETTE
  6. OXERVATE [Suspect]
     Active Substance: CENEGERMIN-BKBJ
     Indication: NEUROTROPHIC KERATOPATHY
     Route: 047
     Dates: start: 20191015, end: 20191208
  7. AUTOLOGOUS SERUM [Concomitant]
     Active Substance: HUMAN SERUM, NORMAL
  8. ZIRGAN [Concomitant]
     Active Substance: GANCICLOVIR
  9. LOTEMAX [Concomitant]
     Active Substance: LOTEPREDNOL ETABONATE
     Dosage: FORM OF ADMINISTRATION: DROPS GEL
  10. OXERVATE [Suspect]
     Active Substance: CENEGERMIN-BKBJ
     Indication: HYPOAESTHESIA EYE
  11. XIIDRA [Concomitant]
     Active Substance: LIFITEGRAST
     Dosage: FORM OF ADMINISTRATION: DROPERETTE

REACTIONS (6)
  - Photophobia [Not Recovered/Not Resolved]
  - Eyelid pain [Not Recovered/Not Resolved]
  - Eye pain [Not Recovered/Not Resolved]
  - Eye swelling [Unknown]
  - Oropharyngeal pain [Unknown]
  - Eye pain [Unknown]

NARRATIVE: CASE EVENT DATE: 20201002
